FAERS Safety Report 7276689-9 (Version None)
Quarter: 2011Q1

REPORT INFORMATION
  Report Type: 
  Country: None (occurrence: None)
  Receive Date: 20110204
  Receipt Date: 20110201
  Transmission Date: 20110831
  Serious: Yes (Other)
  Sender: FDA-Public Use
  Company Number: GB-MERCK-1102GBR00013

PATIENT
  Age: 44 Year
  Sex: Female

DRUGS (4)
  1. DOMPERIDONE [Concomitant]
     Route: 065
  2. EMEND [Suspect]
     Route: 048
  3. EMEND [Suspect]
     Route: 048
  4. DEXAMETHASONE [Concomitant]
     Route: 065

REACTIONS (3)
  - HEMIPARESIS [None]
  - ATAXIA [None]
  - PARAESTHESIA [None]
